FAERS Safety Report 17582401 (Version 1)
Quarter: 2020Q1

REPORT INFORMATION
  Report Type: Spontaneous
  Country: BR (occurrence: BR)
  Receive Date: 20200325
  Receipt Date: 20200325
  Transmission Date: 20200409
  Serious: Yes (Other)
  Sender: FDA-Public Use
  Company Number: BR-EISAI MEDICAL RESEARCH-EC-2020-071923

PATIENT
  Age: 62 Year
  Sex: Female
  Weight: 77 kg

DRUGS (3)
  1. ATENOLOL. [Concomitant]
     Active Substance: ATENOLOL
     Indication: HYPERTENSION
     Route: 048
  2. HYDROCHLOROTHIAZIDE. [Concomitant]
     Active Substance: HYDROCHLOROTHIAZIDE
     Indication: HYPERTENSION
     Route: 048
  3. BELVIQ [Suspect]
     Active Substance: LORCASERIN HYDROCHLORIDE
     Indication: WEIGHT DECREASED
     Route: 048
     Dates: start: 20191109, end: 20200309

REACTIONS (6)
  - Cataract [Unknown]
  - Rash [Recovered/Resolved]
  - Gingival erythema [Recovered/Resolved]
  - Hallucination, visual [Unknown]
  - Eye injury [Unknown]
  - Oral mucosal eruption [Recovered/Resolved]

NARRATIVE: CASE EVENT DATE: 2020
